FAERS Safety Report 20752682 (Version 1)
Quarter: 2022Q2

REPORT INFORMATION
  Report Type: Spontaneous
  Country: US (occurrence: None)
  Receive Date: 20220426
  Receipt Date: 20220426
  Transmission Date: 20220720
  Serious: No
  Sender: FDA-Public Use
  Company Number: US-ROCHE-2908669

PATIENT
  Sex: Male

DRUGS (15)
  1. ESBRIET [Suspect]
     Active Substance: PIRFENIDONE
     Indication: Idiopathic pulmonary fibrosis
     Dosage: 2 TABLETS TID WITH MEALS
     Route: 048
     Dates: start: 20180421
  2. ALLERGY RELIEF (UNK INGREDIENTS) [Concomitant]
  3. AMLODIPINE BESYLATE [Concomitant]
     Active Substance: AMLODIPINE BESYLATE
  4. BENZONATATE [Concomitant]
     Active Substance: BENZONATATE
  5. CALCIUM [Concomitant]
     Active Substance: CALCIUM
  6. DAYTIME COLD MEDICINE (UNK INGREDIENTS) [Concomitant]
     Dosage: LIQ, 10-5-325
  7. FISH OIL [Concomitant]
     Active Substance: FISH OIL
  8. GARLIC [Concomitant]
     Active Substance: GARLIC
  9. GLUCOSAMINE [Concomitant]
     Active Substance: GLUCOSAMINE
  10. LOSARTAN POTASSIUM [Concomitant]
     Active Substance: LOSARTAN POTASSIUM
  11. MAGNESIUM [Concomitant]
     Active Substance: MAGNESIUM
  12. POTASSIUM [Concomitant]
     Active Substance: POTASSIUM
  13. PRAVASTATIN [Concomitant]
     Active Substance: PRAVASTATIN
  14. PROAIR HFA [Concomitant]
     Active Substance: ALBUTEROL SULFATE
     Dosage: AER 108 (90 MC
  15. FLONASE [Concomitant]
     Active Substance: FLUTICASONE PROPIONATE
     Dosage: SUS, 50 MCG/ACT

REACTIONS (1)
  - COVID-19 [Unknown]
